FAERS Safety Report 23171047 (Version 1)
Quarter: 2023Q4

REPORT INFORMATION
  Report Type: Spontaneous
  Country: US (occurrence: None)
  Receive Date: 20231110
  Receipt Date: 20231110
  Transmission Date: 20240109
  Serious: Yes (Death, Hospitalization, Other)
  Sender: FDA-Public Use
  Company Number: 2023A246540

PATIENT
  Age: 72 Year
  Sex: Female

DRUGS (2)
  1. OSIMERTINIB [Suspect]
     Active Substance: OSIMERTINIB
     Indication: Colon cancer metastatic
     Route: 048
     Dates: start: 202202
  2. OSIMERTINIB [Suspect]
     Active Substance: OSIMERTINIB
     Indication: Colon cancer metastatic
     Route: 048

REACTIONS (9)
  - Metastases to liver [Fatal]
  - Metastases to peritoneum [Fatal]
  - Thrombocytopenia [Unknown]
  - Portal vein thrombosis [Unknown]
  - Dermatitis acneiform [Recovering/Resolving]
  - Fatigue [Recovering/Resolving]
  - Blood bilirubin increased [Recovered/Resolved]
  - Anaemia [Unknown]
  - Off label use [Unknown]

NARRATIVE: CASE EVENT DATE: 20220101
